FAERS Safety Report 6242093-5 (Version None)
Quarter: 2009Q2

REPORT INFORMATION
  Report Type: 
  Country: None (occurrence: None)
  Receive Date: 20090623
  Receipt Date: 20090612
  Transmission Date: 20091009
  Serious: Yes (Other)
  Sender: FDA-Public Use
  Company Number: SE-PFIZER INC-2009200863

PATIENT
  Age: 52 Year

DRUGS (2)
  1. ZOLOFT [Suspect]
     Indication: ANXIETY DISORDER
     Dosage: 25 MG, 1X/DAY
     Route: 065
     Dates: start: 20081001
  2. DALACIN [Interacting]
     Dosage: UNK
     Route: 065
     Dates: start: 20090305, end: 20090314

REACTIONS (3)
  - DRUG INEFFECTIVE [None]
  - DRUG INTERACTION [None]
  - POSTMENOPAUSAL HAEMORRHAGE [None]
